FAERS Safety Report 8833768 (Version 1)
Quarter: 2012Q4

REPORT INFORMATION
  Report Type: 
  Country: GB (occurrence: GB)
  Receive Date: 20121010
  Receipt Date: 20121010
  Transmission Date: 20130627
  Serious: Yes (Other)
  Sender: FDA-Public Use
  Company Number: GB-PFIZER INC-2012249175

PATIENT
  Age: 73 Year
  Sex: Female
  Weight: 76 kg

DRUGS (12)
  1. OXALIPLATIN [Suspect]
     Indication: GASTROINTESTINAL CARCINOMA
     Dosage: 250 mg, UNK
     Route: 042
  2. CAPECITABINE [Suspect]
     Indication: GASTROINTESTINAL CARCINOMA
     Dosage: 2 g, 2x/day
     Route: 048
  3. ATENOLOL [Concomitant]
     Dosage: 25 mg, 1x/day
  4. BUCCASTEM [Concomitant]
     Dosage: UNK
  5. DEXAMETHASONE [Concomitant]
     Dosage: UNK
  6. LANTUS [Concomitant]
     Dosage: UNK
  7. LISINOPRIL [Concomitant]
     Dosage: 10 mg, 1x/day
  8. METFORMIN [Concomitant]
     Dosage: 750 mg, 2x/day
  9. METOCLOPRAMIDE [Concomitant]
     Dosage: UNK
  10. NOVORAPID [Concomitant]
     Dosage: UNK
  11. SIMVASTATIN [Concomitant]
     Dosage: 40 mg, 1x/day
  12. ZOPICLONE [Concomitant]
     Dosage: 3.75 mg, UNK
     Dates: start: 20120831

REACTIONS (4)
  - Pneumonia aspiration [Not Recovered/Not Resolved]
  - Ileus [Not Recovered/Not Resolved]
  - Lactic acidosis [Not Recovered/Not Resolved]
  - Shock [Not Recovered/Not Resolved]
